FAERS Safety Report 21757709 (Version 1)
Quarter: 2022Q4

REPORT INFORMATION
  Report Type: Spontaneous
  Country: US (occurrence: None)
  Receive Date: 20221221
  Receipt Date: 20221221
  Transmission Date: 20230113
  Serious: Yes (Hospitalization)
  Sender: FDA-Public Use
  Company Number: US-ROCHE-2772926

PATIENT
  Age: 74 Year
  Sex: Female

DRUGS (2)
  1. ALTEPLASE [Suspect]
     Active Substance: ALTEPLASE
     Indication: Ischaemic stroke
     Dosage: ONGOING: NO
     Route: 040
     Dates: start: 20210216, end: 20210216
  2. ALTEPLASE [Suspect]
     Active Substance: ALTEPLASE
     Dosage: IV ADMINISTRATION OVER 1 HOUR,  ONGOING: NO
     Route: 042
     Dates: start: 20210216, end: 20210216

REACTIONS (1)
  - Angioedema [Not Recovered/Not Resolved]

NARRATIVE: CASE EVENT DATE: 20210216
